FAERS Safety Report 6004138-7 (Version None)
Quarter: 2008Q4

REPORT INFORMATION
  Report Type: 
  Country: None (occurrence: None)
  Receive Date: 20081212
  Receipt Date: 20081201
  Transmission Date: 20090506
  Serious: Yes (Hospitalization)
  Sender: FDA-Public Use
  Company Number: GXKR2008IN11452

PATIENT
  Age: 23 Year
  Sex: Female

DRUGS (8)
  1. PANTOPRAZOLE (NGX) (PANTOPRAZOLE) UNKNOWN [Suspect]
     Indication: ABDOMINAL PAIN
     Dosage: 40 MG, QD, INTRAVENOUS
     Route: 042
  2. DIAZEPAM [Suspect]
     Indication: GRAND MAL CONVULSION
     Dosage: INTRAVENOUS
     Route: 042
  3. DICLOFENAC (NGX) (DICLOFENAC) UNKNOWN [Suspect]
     Indication: ABDOMINAL PAIN
     Dosage: BID, INTRAMUSCULAR
     Route: 030
  4. METOCLOPRAMIDE [Suspect]
     Dosage: INTRAVENOUS
     Route: 042
  5. PHENYTOIN [Suspect]
     Indication: GRAND MAL CONVULSION
     Dosage: 300 MG, QD AT BED TIME, ORAL
     Route: 048
  6. DROTAVERINE (DROTAVERINE) [Suspect]
     Indication: ABDOMINAL PAIN
     Dosage: 40 MG, TID, INTRAMUSCULAR
     Route: 030
  7. PENTAZOCINE LACTATE [Concomitant]
  8. PROMETHAZINE [Concomitant]

REACTIONS (13)
  - ABDOMINAL PAIN [None]
  - AREFLEXIA [None]
  - BLOOD PRESSURE INCREASED [None]
  - BLOOD SODIUM DECREASED [None]
  - GRAND MAL CONVULSION [None]
  - HYPOTONIA [None]
  - INCOHERENT [None]
  - LOSS OF CONSCIOUSNESS [None]
  - PORPHYRIA [None]
  - PUPILLARY REFLEX IMPAIRED [None]
  - SOMNOLENCE [None]
  - UNRESPONSIVE TO STIMULI [None]
  - VOMITING [None]
